FAERS Safety Report 21966233 (Version 1)
Quarter: 2023Q1

REPORT INFORMATION
  Report Type: Spontaneous
  Country: DE (occurrence: DE)
  Receive Date: 20230208
  Receipt Date: 20230208
  Transmission Date: 20230417
  Serious: No
  Sender: FDA-Public Use
  Company Number: None

PATIENT
  Age: 59 Year
  Sex: Male

DRUGS (6)
  1. ATORVASTATIN CALCIUM [Suspect]
     Active Substance: ATORVASTATIN CALCIUM
     Indication: Hypercholesterolaemia
     Dosage: 20 MILLIGRAM EVERY 1 DAY
     Route: 048
     Dates: start: 201308
  2. EZETIMIBE [Suspect]
     Active Substance: EZETIMIBE
     Indication: Hypercholesterolaemia
     Dosage: 10 MILLIGRAM EVERY 1 DAY
     Route: 048
     Dates: start: 201203
  3. EZETIMIBE [Suspect]
     Active Substance: EZETIMIBE
     Dosage: 10 MILLIGRAM
     Route: 048
     Dates: start: 202202, end: 202203
  4. PRAVASTATIN [Suspect]
     Active Substance: PRAVASTATIN
     Indication: Hypercholesterolaemia
     Dosage: 20 MILLIGRAM EVERY 1 DAY
     Dates: start: 200502, end: 200612
  5. PRAVASTATIN [Suspect]
     Active Substance: PRAVASTATIN
     Dosage: 10 MILLIGRAM EVERY 1 DAY
     Route: 048
     Dates: start: 202003, end: 202010
  6. ROSUVASTATIN [Suspect]
     Active Substance: ROSUVASTATIN
     Indication: Hypercholesterolaemia
     Dosage: 5 MILLIGRAM
     Route: 048
     Dates: start: 202201, end: 202202

REACTIONS (1)
  - Myalgia [Recovered/Resolved]
